FAERS Safety Report 5913324-3 (Version None)
Quarter: 2008Q4

REPORT INFORMATION
  Report Type: 
  Country: None (occurrence: None)
  Receive Date: 20081008
  Receipt Date: 20081008
  Transmission Date: 20090506
  Serious: No
  Sender: FDA-Public Use
  Company Number: None

PATIENT
  Age: 67 Year
  Sex: Female
  Weight: 72.5755 kg

DRUGS (1)
  1. CHANTIX [Suspect]
     Indication: SMOKING CESSATION THERAPY
     Dosage: 1 A DAY

REACTIONS (5)
  - AMNESIA [None]
  - FEELING ABNORMAL [None]
  - ILL-DEFINED DISORDER [None]
  - LOSS OF EMPLOYMENT [None]
  - MENTAL IMPAIRMENT [None]
